FAERS Safety Report 8443796-4 (Version None)
Quarter: 2012Q2

REPORT INFORMATION
  Report Type: 
  Country: None (occurrence: None)
  Receive Date: 20120618
  Receipt Date: 20120608
  Transmission Date: 20120825
  Serious: Yes (Hospitalization)
  Sender: FDA-Public Use
  Company Number: FR-SANOFI-AVENTIS-2012SA040893

PATIENT
  Age: 84 Year
  Sex: Female

DRUGS (2)
  1. LASIX [Suspect]
     Route: 048
     Dates: start: 20120319, end: 20120323
  2. DIGOXIN [Suspect]
     Indication: ATRIAL FIBRILLATION
     Route: 048
     Dates: start: 20111206, end: 20120319

REACTIONS (3)
  - DEHYDRATION [None]
  - SOMNOLENCE [None]
  - TOXICITY TO VARIOUS AGENTS [None]
